FAERS Safety Report 4830631-6 (Version None)
Quarter: 2005Q4

REPORT INFORMATION
  Report Type: 
  Country: None (occurrence: None)
  Receive Date: 20051114
  Receipt Date: 20051031
  Transmission Date: 20060501
  Serious: Yes (Hospitalization)
  Sender: FDA-Public Use
  Company Number: JP-2005-023582

PATIENT
  Age: 91 Year
  Sex: Male

DRUGS (8)
  1. SOTALOL (BETAPACE)(SOTALOL HYDROCHLORIDE) TABLET [Suspect]
     Indication: VENTRICULAR TACHYCARDIA
     Dosage: 60 MG/D (40 MG AM, 20MG PM),  ORAL
     Route: 048
     Dates: start: 20041012, end: 20041220
  2. RABEPRAZOLE SODIUM [Suspect]
     Indication: REFLUX OESOPHAGITIS
     Dosage: 10 MG/D, ORAL
     Route: 048
     Dates: start: 20040526, end: 20041220
  3. WARFARIN SODIUM [Concomitant]
  4. BLOPRESS (CANDESARTAN CILEXETIL) [Concomitant]
  5. ASPIRIN [Concomitant]
  6. ALDACTONE [Concomitant]
  7. FRANDOL [Concomitant]
  8. BASEN (VOGLIBOSE) [Concomitant]

REACTIONS (8)
  - ABASIA [None]
  - ALANINE AMINOTRANSFERASE INCREASED [None]
  - ASPARTATE AMINOTRANSFERASE INCREASED [None]
  - BLOOD ALKALINE PHOSPHATASE INCREASED [None]
  - BLOOD UREA INCREASED [None]
  - GAMMA-GLUTAMYLTRANSFERASE INCREASED [None]
  - PANCREATITIS ACUTE [None]
  - SOMNOLENCE [None]
